FAERS Safety Report 8574613-X (Version None)
Quarter: 2012Q3

REPORT INFORMATION
  Report Type: 
  Country: None (occurrence: None)
  Receive Date: 20120807
  Receipt Date: 20120726
  Transmission Date: 20120928
  Serious: Yes (Other)
  Sender: FDA-Public Use
  Company Number: BR-AMGEN-BRASP2012048397

PATIENT
  Age: 74 Year
  Sex: Female

DRUGS (1)
  1. ETANERCEPT [Suspect]
     Indication: RHEUMATOID ARTHRITIS
     Dosage: 25 MG, 2X/WEEK
     Dates: start: 20040101

REACTIONS (6)
  - RHEUMATOID ARTHRITIS [None]
  - SKIN NECROSIS [None]
  - VASCULITIS [None]
  - AUTOIMMUNE DISORDER [None]
  - PALPABLE PURPURA [None]
  - RHEUMATOID FACTOR INCREASED [None]
